FAERS Safety Report 15618657 (Version 7)
Quarter: 2020Q3

REPORT INFORMATION
  Report Type: Spontaneous
  Country: US (occurrence: US)
  Receive Date: 20181114
  Receipt Date: 20200728
  Transmission Date: 20201102
  Serious: Yes (Hospitalization)
  Sender: FDA-Public Use
  Company Number: US-PFIZER INC-2018453848

PATIENT
  Age: 75 Year
  Sex: Female
  Weight: 81 kg

DRUGS (6)
  1. LYRICA [Suspect]
     Active Substance: PREGABALIN
     Indication: BACK PAIN
  2. LYRICA [Suspect]
     Active Substance: PREGABALIN
     Indication: NEUROPATHY PERIPHERAL
  3. LYRICA [Suspect]
     Active Substance: PREGABALIN
     Indication: SPINAL STENOSIS
     Dosage: 100 MG, 3X/DAY
     Route: 048
     Dates: start: 2016, end: 20181024
  4. LYRICA [Suspect]
     Active Substance: PREGABALIN
     Indication: POST LAMINECTOMY SYNDROME
     Dosage: 1000 MG, 3X/DAY
     Route: 048
  5. MORPHINE [Concomitant]
     Active Substance: MORPHINE
     Indication: BACK DISORDER
     Dosage: UNK
  6. LYRICA [Suspect]
     Active Substance: PREGABALIN
     Indication: PAIN IN EXTREMITY

REACTIONS (6)
  - Withdrawal syndrome [Recovered/Resolved]
  - Prescribed overdose [Unknown]
  - Nausea [Not Recovered/Not Resolved]
  - Restlessness [Unknown]
  - Vomiting [Unknown]
  - Product prescribing error [Unknown]

NARRATIVE: CASE EVENT DATE: 201810
